FAERS Safety Report 7419688-6 (Version None)
Quarter: 2011Q2

REPORT INFORMATION
  Report Type: 
  Country: None (occurrence: None)
  Receive Date: 20110418
  Receipt Date: 20110406
  Transmission Date: 20111010
  Serious: Yes (Other)
  Sender: FDA-Public Use
  Company Number: US-JNJFOC-20110403768

PATIENT
  Sex: Female

DRUGS (4)
  1. FENTANYL-100 [Suspect]
     Route: 061
  2. FENTANYL [Suspect]
     Indication: PAIN
     Dosage: 25 UG/HR ALTERNATING PATCHES
     Route: 062
  3. DURAGESIC [Suspect]
     Indication: PAIN
     Route: 062
  4. FENTANYL-100 [Suspect]
     Indication: PAIN
     Dosage: 25 UG/HR ALTERNATING EVERY 24 HOURS
     Route: 061

REACTIONS (8)
  - FALL [None]
  - TOXICITY TO VARIOUS AGENTS [None]
  - SKELETAL INJURY [None]
  - DRUG ADMINISTERED AT INAPPROPRIATE SITE [None]
  - MALAISE [None]
  - DRUG PRESCRIBING ERROR [None]
  - INAPPROPRIATE SCHEDULE OF DRUG ADMINISTRATION [None]
  - FEELING ABNORMAL [None]
